FAERS Safety Report 8947622 (Version 1)
Quarter: 2012Q4

REPORT INFORMATION
  Report Type: 
  Country: US (occurrence: US)
  Receive Date: 20121204
  Receipt Date: 20121204
  Transmission Date: 20130627
  Serious: Yes (Other)
  Sender: FDA-Public Use
  Company Number: US-009507513-1211USA012242

PATIENT
  Sex: Female

DRUGS (3)
  1. SAPHRIS [Suspect]
     Route: 060
  2. REQUIP [Concomitant]
  3. KLONOPIN [Concomitant]

REACTIONS (1)
  - Convulsion [Recovered/Resolved]
